FAERS Safety Report 16807147 (Version 3)
Quarter: 2019Q4

REPORT INFORMATION
  Report Type: Report from Study
  Country: AR (occurrence: AR)
  Receive Date: 20190913
  Receipt Date: 20191015
  Transmission Date: 20200122
  Serious: Yes (Hospitalization, Other)
  Sender: FDA-Public Use
  Company Number: PHHY2019AR213430

PATIENT
  Age: 2 Year
  Sex: Female

DRUGS (2)
  1. ILARIS [Suspect]
     Active Substance: CANAKINUMAB
     Indication: CRYOPYRIN ASSOCIATED PERIODIC SYNDROME
     Dosage: 150 MG, UNK
     Route: 065
     Dates: start: 20190201
  2. ILARIS [Suspect]
     Active Substance: CANAKINUMAB
     Dosage: 150 UNK, UNK
     Route: 065
     Dates: start: 201907, end: 20190815

REACTIONS (8)
  - Dehydration [Unknown]
  - Diarrhoea [Unknown]
  - Vomiting [Unknown]
  - Intestinal ulcer [Unknown]
  - Metabolic acidosis [Recovered/Resolved]
  - Cryopyrin associated periodic syndrome [Not Recovered/Not Resolved]
  - Condition aggravated [Not Recovered/Not Resolved]
  - Crohn^s disease [Unknown]

NARRATIVE: CASE EVENT DATE: 201907
